FAERS Safety Report 17162521 (Version 1)
Quarter: 2019Q4

REPORT INFORMATION
  Report Type: Spontaneous
  Country: NL (occurrence: NL)
  Receive Date: 20191217
  Receipt Date: 20191217
  Transmission Date: 20200122
  Serious: Yes (Other)
  Sender: FDA-Public Use
  Company Number: NL-TEVA-2019-NL-1151367

PATIENT
  Age: 67 Year
  Sex: Female
  Weight: 49 kg

DRUGS (10)
  1. OXAZEPAM TABLET 50 MG [Concomitant]
     Dosage: 3DD1
  2. FRAXIPARINE INJECTIEVLOEISTOF 2850IE/0,3ML (9500IE/ML) [Concomitant]
     Dosage: 1DD1 1 DOSAGE FORMS
  3. OLANZAPINE TABLET, 2,5 MG (MILLIGRAM) [Suspect]
     Active Substance: OLANZAPINE
     Indication: PSYCHOTIC DISORDER
     Dosage: 1X A DAY 4 PIECES 10 MG
     Dates: start: 2010
  4. METOPROLOL TABLET MGA 100MG (SUCCINAAT) [Concomitant]
     Active Substance: METOPROLOL
     Dosage: 1DD1
  5. ANASTROZOL TABLET 1MG [Concomitant]
     Dosage: 1DD1
  6. LACTULOSE STROOP 670 MG/ML (500MG/G) [Concomitant]
     Dosage: Z.N. 1X PER DAG 15 MILLILITER
  7. AMLODIPINE TABLET 5 MG (ORAAL) [Concomitant]
     Dosage: 1DD1 50 MG
  8. METOCLOPRAMIDE INJECTIE/INFUUS, 1 MG/MG (MILLIGRAM PER MILLIGRAM) [Suspect]
     Active Substance: METOCLOPRAMIDE
     Dosage: MAX. 3X PER DAY 10 MG
     Route: 065
     Dates: start: 20191104, end: 20191104
  9. KALIUMCHLORIDE 60 MMOL/1500 ML (IV) [Concomitant]
  10. OMEPRAZOL TABLET MSR 10MG [Concomitant]
     Dosage: 4DD1

REACTIONS (1)
  - Electrocardiogram QT interval abnormal [Not Recovered/Not Resolved]

NARRATIVE: CASE EVENT DATE: 20191104
